FAERS Safety Report 21032314 (Version 2)
Quarter: 2022Q3

REPORT INFORMATION
  Report Type: Spontaneous
  Country: US (occurrence: US)
  Receive Date: 20220701
  Receipt Date: 20220812
  Transmission Date: 20221027
  Serious: No
  Sender: FDA-Public Use
  Company Number: US-PFIZER INC-PV202200006133

PATIENT
  Age: 13 Year
  Sex: Male

DRUGS (1)
  1. GENOTROPIN [Suspect]
     Active Substance: SOMATROPIN
     Dosage: 0.8 MG (6 DAYS/WEEK)

REACTIONS (4)
  - Exposure via skin contact [Unknown]
  - Device leakage [Unknown]
  - Poor quality device used [Unknown]
  - Device use issue [Unknown]
